FAERS Safety Report 5017440-2 (Version None)
Quarter: 2006Q2

REPORT INFORMATION
  Report Type: 
  Country: None (occurrence: None)
  Receive Date: 20060525
  Receipt Date: 20060516
  Transmission Date: 20061013
  Serious: Yes (Other)
  Sender: FDA-Public Use
  Company Number: 200612085BCC

PATIENT
  Age: 81 Year
  Sex: Male
  Weight: 74.8435 kg

DRUGS (8)
  1. ACETYLSALICYLIC ACID SRT [Suspect]
     Indication: MYOCARDIAL INFARCTION
     Dosage: 325 MG, QD; ORAL
     Route: 048
     Dates: start: 19980101
  2. ACETYLSALICYLIC ACID SRT [Suspect]
     Indication: PROPHYLAXIS
     Dosage: 325 MG, QD; ORAL
     Route: 048
     Dates: start: 19980101
  3. SYNTHROID [Concomitant]
  4. PRAVACHOL [Concomitant]
  5. ATENOLOL [Concomitant]
  6. NORVASC [Concomitant]
  7. IMDUR [Concomitant]
  8. PROTONIX [Concomitant]

REACTIONS (1)
  - HELICOBACTER GASTRITIS [None]
